FAERS Safety Report 23768994 (Version 1)
Quarter: 2024Q2

REPORT INFORMATION
  Report Type: Spontaneous
  Country: CN (occurrence: CN)
  Receive Date: 20240422
  Receipt Date: 20240422
  Transmission Date: 20240716
  Serious: Yes (Life-Threatening, Other)
  Sender: FDA-Public Use
  Company Number: CN-BAYER-2024A059691

PATIENT
  Age: 55 Year
  Sex: Male
  Weight: 81 kg

DRUGS (2)
  1. ULTRAVIST [Suspect]
     Active Substance: IOPROMIDE
     Indication: Cardiac ablation
     Dosage: LESS THAN 1 ML, ONCE
     Route: 013
     Dates: start: 20240416, end: 20240416
  2. ULTRAVIST [Suspect]
     Active Substance: IOPROMIDE
     Indication: Atrial fibrillation

REACTIONS (6)
  - Anaphylactic shock [Recovering/Resolving]
  - Blood pressure decreased [Recovering/Resolving]
  - Ventricular fibrillation [None]
  - Electrocardiogram ST segment elevation [None]
  - Pallor [None]
  - Hyperhidrosis [None]

NARRATIVE: CASE EVENT DATE: 20240416
